FAERS Safety Report 9834882 (Version 1)
Quarter: 2014Q1

REPORT INFORMATION
  Report Type: Spontaneous
  Country: US (occurrence: US)
  Receive Date: 20140122
  Receipt Date: 20140122
  Transmission Date: 20141002
  Serious: No
  Sender: FDA-Public Use
  Company Number: US-BAUSCH-BL-2013-004476

PATIENT
  Age: 65 Year
  Sex: Male
  Weight: 88.53 kg

DRUGS (2)
  1. ALAWAY (KETOTIFEN FUMARATE OPHTHALMIC SOLUTION) [Suspect]
     Indication: EYE SWELLING
     Dosage: 1 DROP; TWICE A DAY; RIGHT EYE
     Route: 047
     Dates: start: 20130729, end: 20130729
  2. ALAWAY (KETOTIFEN FUMARATE OPHTHALMIC SOLUTION) [Suspect]
     Dosage: 1 DROP; TWICE A DAY; LEFT EYE
     Route: 047
     Dates: start: 20130729, end: 20130729

REACTIONS (3)
  - Off label use [Recovered/Resolved]
  - Eye swelling [Not Recovered/Not Resolved]
  - Condition aggravated [Not Recovered/Not Resolved]
